FAERS Safety Report 21994566 (Version 1)
Quarter: 2023Q1

REPORT INFORMATION
  Report Type: Spontaneous
  Country: US (occurrence: None)
  Receive Date: 20230214
  Receipt Date: 20230214
  Transmission Date: 20230417
  Serious: Yes (Disabling)
  Sender: FDA-Public Use
  Company Number: None

PATIENT
  Age: 64 Year
  Sex: Female
  Weight: 113.4 kg

DRUGS (19)
  1. ELIQUIS [Suspect]
     Active Substance: APIXABAN
     Indication: Thrombosis
     Dosage: FREQUENCY : TWICE A DAY;?
     Route: 048
     Dates: start: 202209, end: 20221206
  2. FAMOTIDINE [Concomitant]
     Active Substance: FAMOTIDINE
  3. RESTASIS [Suspect]
     Active Substance: CYCLOSPORINE
  4. HYDROCORTISONE [Concomitant]
     Active Substance: HYDROCORTISONE
  5. ALBUTEROL [Concomitant]
  6. SDS CREAM [Concomitant]
  7. LIDOCAINE VISC [Concomitant]
  8. TRENTI CREAM [Concomitant]
  9. FLOUCAT HFA [Concomitant]
  10. CLONAZEPAM [Concomitant]
     Active Substance: CLONAZEPAM
  11. DEXILANT [Concomitant]
     Active Substance: DEXLANSOPRAZOLE
  12. MAGNESIUM [Concomitant]
     Active Substance: MAGNESIUM
  13. IRON [Concomitant]
     Active Substance: IRON
  14. ZINC [Concomitant]
     Active Substance: ZINC
  15. COLLAGEN [Concomitant]
     Active Substance: COLLAGEN
  16. GREEN ^S POWDER [Concomitant]
  17. BEET POWDER [Concomitant]
  18. BIOTIN [Concomitant]
     Active Substance: BIOTIN
  19. CHONDROITIN SULFATE (BOVINE)\GLUCOSAMINE HYDROCHLORIDE [Concomitant]
     Active Substance: CHONDROITIN SULFATE (BOVINE)\GLUCOSAMINE HYDROCHLORIDE

REACTIONS (11)
  - Dry skin [None]
  - Skin exfoliation [None]
  - Feeling abnormal [None]
  - Myalgia [None]
  - Chest pain [None]
  - Pain in extremity [None]
  - Back pain [None]
  - Renal pain [None]
  - Alopecia [None]
  - Blood disorder [None]
  - Haemorrhagic diathesis [None]

NARRATIVE: CASE EVENT DATE: 20220906
